FAERS Safety Report 22198249 (Version 1)
Quarter: 2023Q2

REPORT INFORMATION
  Report Type: Spontaneous
  Country: US (occurrence: US)
  Receive Date: 20230411
  Receipt Date: 20230411
  Transmission Date: 20230722
  Serious: No
  Sender: FDA-Public Use
  Company Number: US-Kiniksa Pharmaceuticals Ltd.-2022KPU000902

PATIENT
  Age: 73 Year
  Sex: Female

DRUGS (3)
  1. ARCALYST [Suspect]
     Active Substance: RILONACEPT
     Indication: Pericardial effusion
     Route: 058
  2. ARCALYST [Suspect]
     Active Substance: RILONACEPT
     Indication: Systemic lupus erythematosus
  3. UNSPECIFIED INGREDIENT [Concomitant]
     Active Substance: UNSPECIFIED INGREDIENT
     Indication: Product used for unknown indication

REACTIONS (3)
  - Hypotension [Unknown]
  - Hypersensitivity [Unknown]
  - Off label use [Unknown]
